FAERS Safety Report 12778891 (Version 1)
Quarter: 2016Q3

REPORT INFORMATION
  Report Type: Spontaneous
  Country: US (occurrence: US)
  Receive Date: 20160926
  Receipt Date: 20160926
  Transmission Date: 20161109
  Serious: No
  Sender: FDA-Public Use
  Company Number: US-JAZZ-2016-US-011015

PATIENT
  Sex: Male

DRUGS (31)
  1. XYREM [Suspect]
     Active Substance: SODIUM OXYBATE
     Indication: INSOMNIA
     Dosage: 2.25 G, BID
     Route: 048
     Dates: start: 201204, end: 201204
  2. KLONOPIN [Concomitant]
     Active Substance: CLONAZEPAM
  3. LAMICTAL [Concomitant]
     Active Substance: LAMOTRIGINE
  4. SONATA [Concomitant]
     Active Substance: ZALEPLON
  5. TRIAZOLAM. [Concomitant]
     Active Substance: TRIAZOLAM
  6. VITAMIN B12 [Concomitant]
     Active Substance: CYANOCOBALAMIN
  7. XYREM [Suspect]
     Active Substance: SODIUM OXYBATE
     Dosage: 4.5 G, BID
     Route: 048
     Dates: start: 201204
  8. RISPERIDONE. [Concomitant]
     Active Substance: RISPERIDONE
  9. SEROQUEL [Concomitant]
     Active Substance: QUETIAPINE FUMARATE
  10. XYREM [Suspect]
     Active Substance: SODIUM OXYBATE
     Dosage: DOSE ADJUSTMENT
     Route: 048
     Dates: start: 201204, end: 201204
  11. BENADRYL ALLERGY [Concomitant]
     Active Substance: DIPHENHYDRAMINE HYDROCHLORIDE
  12. UNISOM SLEEPTABS [Concomitant]
     Active Substance: DOXYLAMINE SUCCINATE
  13. VITAMIN D [Concomitant]
     Active Substance: CHOLECALCIFEROL
  14. GLUCOSAMINE AND CHONDROITIN [Concomitant]
     Active Substance: CHONDROITIN SULFATE (BOVINE)\GLUCOSAMINE HYDROCHLORIDE
  15. MAGNESIUM GLUCONATE [Concomitant]
     Active Substance: MAGNESIUM GLUCONATE
  16. INVEGA [Concomitant]
     Active Substance: PALIPERIDONE
  17. TRAZODONE HYDROCHLORIDE. [Concomitant]
     Active Substance: TRAZODONE HYDROCHLORIDE
  18. ADDERALL [Concomitant]
     Active Substance: AMPHETAMINE ASPARTATE\AMPHETAMINE SULFATE\DEXTROAMPHETAMINE SACCHARATE\DEXTROAMPHETAMINE SULFATE
  19. BUPROPION. [Concomitant]
     Active Substance: BUPROPION
  20. GEODON [Concomitant]
     Active Substance: ZIPRASIDONE HYDROCHLORIDE\ZIPRASIDONE MESYLATE
  21. NAMENDA [Concomitant]
     Active Substance: MEMANTINE HYDROCHLORIDE
  22. SAPHRIS [Concomitant]
     Active Substance: ASENAPINE MALEATE
  23. LORAZEPAM. [Concomitant]
     Active Substance: LORAZEPAM
  24. CONJUGATED LINOLEIC ACID [Concomitant]
  25. BELSOMRA [Concomitant]
     Active Substance: SUVOREXANT
  26. METFORMIN [Concomitant]
     Active Substance: METFORMIN HYDROCHLORIDE
  27. AMBIEN [Concomitant]
     Active Substance: ZOLPIDEM TARTRATE
  28. ATIVAN [Concomitant]
     Active Substance: LORAZEPAM
  29. LUNESTA [Concomitant]
     Active Substance: ESZOPICLONE
  30. PROVIGIL [Concomitant]
     Active Substance: MODAFINIL
  31. ROZEREM [Concomitant]
     Active Substance: RAMELTEON

REACTIONS (1)
  - Hunger [Unknown]
